FAERS Safety Report 6764249-5 (Version None)
Quarter: 2010Q2

REPORT INFORMATION
  Report Type: 
  Country: None (occurrence: None)
  Receive Date: 20100608
  Receipt Date: 20100531
  Transmission Date: 20101027
  Serious: Yes (Other)
  Sender: FDA-Public Use
  Company Number: 1000014317

PATIENT
  Age: 35 Year
  Sex: Female

DRUGS (5)
  1. FOSFOMYCIN (FOSFOMYCIN TROMETAMOL) (GRANULATE) [Suspect]
     Indication: URINARY TRACT INFECTION
     Dosage: 3 GM (3 GM, 1 IN 1 D), ORAL
     Route: 048
     Dates: start: 20100524, end: 20100524
  2. NOLOTIL (CAPSULES) [Concomitant]
  3. RANITIDINA TARBIS (TABLETS) [Concomitant]
  4. ACETAMINOPHEN [Concomitant]
  5. BLASTOESTIMULINA [Concomitant]

REACTIONS (1)
  - URTICARIA [None]
